FAERS Safety Report 16890894 (Version 1)
Quarter: 2019Q4

REPORT INFORMATION
  Report Type: Spontaneous
  Country: US (occurrence: US)
  Receive Date: 20191006
  Receipt Date: 20191006
  Transmission Date: 20200122
  Serious: Yes (Hospitalization)
  Sender: FDA-Public Use
  Company Number: None

PATIENT
  Age: 23 Year
  Sex: Female
  Weight: 81.45 kg

DRUGS (4)
  1. METFORMIN [Concomitant]
     Active Substance: METFORMIN HYDROCHLORIDE
  2. JARDIANCE [Suspect]
     Active Substance: EMPAGLIFLOZIN
     Indication: TYPE 2 DIABETES MELLITUS
     Dosage: ?          QUANTITY:30 TABLET(S);?
     Route: 048
     Dates: start: 20190928, end: 20190929
  3. LEVEMIR [Concomitant]
     Active Substance: INSULIN DETEMIR
  4. NOVOLOG [Concomitant]
     Active Substance: INSULIN ASPART

REACTIONS (11)
  - Dry mouth [None]
  - Lethargy [None]
  - Heart rate increased [None]
  - Aphasia [None]
  - Gait inability [None]
  - Malaise [None]
  - Fatigue [None]
  - Blood pressure decreased [None]
  - Diabetic ketoacidosis [None]
  - Blood potassium decreased [None]
  - Fluid intake reduced [None]

NARRATIVE: CASE EVENT DATE: 20190930
